FAERS Safety Report 7825225 (Version 4)
Quarter: 2015Q2

REPORT INFORMATION
  Report Type: Spontaneous
  Country: US (occurrence: US)
  Receive Date: 20110224
  Receipt Date: 20150514
  Transmission Date: 20150821
  Serious: Yes (Hospitalization, Other)
  Sender: FDA-Public Use
  Company Number: US-ROCHE-734076

PATIENT
  Age: 20 Year
  Sex: Female
  Weight: 51.7 kg

DRUGS (3)
  1. ACCUTANE [Suspect]
     Active Substance: ISOTRETINOIN
     Route: 065
     Dates: start: 200202, end: 200204
  2. ACCUTANE [Suspect]
     Active Substance: ISOTRETINOIN
     Indication: ACNE
     Route: 065
     Dates: start: 19920101, end: 19920225
  3. MOTRIN [Concomitant]
     Active Substance: IBUPROFEN

REACTIONS (10)
  - Colitis ulcerative [Unknown]
  - Depression [Unknown]
  - Irritable bowel syndrome [Unknown]
  - Suicidal ideation [Unknown]
  - Anal fistula [Unknown]
  - Inflammatory bowel disease [Unknown]
  - Crohn^s disease [Unknown]
  - Gastrointestinal injury [Unknown]
  - Intestinal obstruction [Unknown]
  - Intestinal haemorrhage [Unknown]

NARRATIVE: CASE EVENT DATE: 199501
